FAERS Safety Report 8235296-1 (Version None)
Quarter: 2012Q1

REPORT INFORMATION
  Report Type: 
  Country: None (occurrence: None)
  Receive Date: 20120326
  Receipt Date: 20120319
  Transmission Date: 20120608
  Serious: No
  Sender: FDA-Public Use
  Company Number: US-PFIZER INC-2012026632

PATIENT
  Sex: Female
  Weight: 86.168 kg

DRUGS (7)
  1. SIMVASTATIN [Suspect]
     Indication: BLOOD CHOLESTEROL INCREASED
     Dosage: UNK
     Dates: end: 20110901
  2. HYDROCHLOROTHIAZIDE [Concomitant]
     Indication: BLOOD PRESSURE INCREASED
  3. LIPITOR [Suspect]
     Dosage: UNK
     Dates: start: 20110901
  4. LIPITOR [Suspect]
     Indication: BLOOD CHOLESTEROL INCREASED
     Dosage: 20 MG, DAILY
     Dates: start: 20110301
  5. FEMRING [Concomitant]
     Dosage: 0.1 MG, DAILY
  6. ATORVASTATIN CALCIUM [Suspect]
     Indication: BLOOD CHOLESTEROL INCREASED
     Dosage: UNK
  7. HYDROCHLOROTHIAZIDE [Concomitant]
     Indication: FLUID RETENTION
     Dosage: 81 MG, DAILY

REACTIONS (4)
  - MYALGIA [None]
  - ASTHENIA [None]
  - PAIN [None]
  - BURNING SENSATION [None]
